FAERS Safety Report 7204942-3 (Version None)
Quarter: 2010Q4

REPORT INFORMATION
  Report Type: 
  Country: None (occurrence: None)
  Receive Date: 20101217
  Receipt Date: 20101206
  Transmission Date: 20110411
  Serious: Yes (Death, Hospitalization)
  Sender: FDA-Public Use
  Company Number: 2010AF000021

PATIENT
  Age: 75 Year
  Sex: Male

DRUGS (9)
  1. DIGOXIN [Suspect]
     Dosage: 0.25 MG;QD;PO
     Route: 048
     Dates: start: 19991201
  2. *OXYGEN [Concomitant]
  3. COUMADIN [Concomitant]
  4. LASIX [Concomitant]
  5. ALLOPURINOL [Concomitant]
  6. DOPAMINE [Concomitant]
  7. ALDACTONE [Concomitant]
  8. COREG [Concomitant]
  9. METHOTREXATE [Concomitant]

REACTIONS (44)
  - ABDOMINAL DISTENSION [None]
  - ABDOMINAL PAIN UPPER [None]
  - ACUTE PRERENAL FAILURE [None]
  - ARTHRALGIA [None]
  - ASTHENIA [None]
  - ATRIAL FIBRILLATION [None]
  - ATRIOVENTRICULAR BLOCK COMPLETE [None]
  - BLOOD PRESSURE SYSTOLIC DECREASED [None]
  - CARDIAC FAILURE CONGESTIVE [None]
  - CARDIOVASCULAR DISORDER [None]
  - CELLULITIS [None]
  - CHEST DISCOMFORT [None]
  - COAGULOPATHY [None]
  - CONDITION AGGRAVATED [None]
  - CONSTIPATION [None]
  - COR PULMONALE [None]
  - COUGH [None]
  - DYSPNOEA [None]
  - FALL [None]
  - FATIGUE [None]
  - GENITAL SWELLING [None]
  - GYNAECOMASTIA [None]
  - HYPERTENSION [None]
  - HYPOTENSION [None]
  - HYPOXIA [None]
  - LEFT ATRIAL DILATATION [None]
  - MITRAL VALVE INCOMPETENCE [None]
  - MULTIPLE INJURIES [None]
  - MUSCLE SPASMS [None]
  - MUSCULOSKELETAL CHEST PAIN [None]
  - NO THERAPEUTIC RESPONSE [None]
  - PAIN [None]
  - PALPITATIONS [None]
  - PULMONARY HYPERTENSION [None]
  - RALES [None]
  - RECTAL HAEMORRHAGE [None]
  - RIGHT ATRIAL DILATATION [None]
  - RIGHT VENTRICULAR FAILURE [None]
  - RIGHT VENTRICULAR HYPERTROPHY [None]
  - SKIN IRRITATION [None]
  - TREATMENT NONCOMPLIANCE [None]
  - UNEVALUABLE EVENT [None]
  - UPPER GASTROINTESTINAL HAEMORRHAGE [None]
  - WEIGHT INCREASED [None]
